FAERS Safety Report 9164676 (Version 2)
Quarter: 2013Q2

REPORT INFORMATION
  Report Type: Spontaneous
  Country: DE (occurrence: DE)
  Receive Date: 20130315
  Receipt Date: 20130611
  Transmission Date: 20140414
  Serious: Yes (Other)
  Sender: FDA-Public Use
  Company Number: DE-AMGEN-DEUSP2013017959

PATIENT
  Age: 71 Year
  Sex: Female

DRUGS (6)
  1. ENBREL [Suspect]
     Indication: PSORIATIC ARTHROPATHY
     Dosage: 50 MG, WEEKLY
     Route: 065
     Dates: start: 20120420
  2. CORTISONE [Concomitant]
     Dosage: 50 MG, QWK
  3. CORTISONE [Concomitant]
     Dosage: 25 MG, UNK
  4. CORTISONE [Concomitant]
     Dosage: 5 MG, UNK
  5. CORTISONE [Concomitant]
     Dosage: UNK
  6. FENTANYL [Concomitant]
     Indication: BACK DISORDER
     Dosage: UNK

REACTIONS (4)
  - Glaucoma [Not Recovered/Not Resolved]
  - Eye haemorrhage [Not Recovered/Not Resolved]
  - Intraocular pressure increased [Not Recovered/Not Resolved]
  - Iritis [Unknown]
